FAERS Safety Report 8820833 (Version 1)
Quarter: 2012Q4

REPORT INFORMATION
  Report Type: 
  Country: DE (occurrence: DE)
  Receive Date: 20121002
  Receipt Date: 20121002
  Transmission Date: 20130627
  Serious: Yes (Other)
  Sender: FDA-Public Use
  Company Number: DE-GILEAD-2012-0061980

PATIENT
  Sex: Male

DRUGS (1)
  1. TRUVADA [Suspect]
     Indication: HIV INFECTION
     Dosage: UNK
     Dates: start: 20050524, end: 20080416

REACTIONS (5)
  - Tooth loss [Unknown]
  - Dry mouth [Unknown]
  - Tooth disorder [Unknown]
  - Malnutrition [Unknown]
  - Weight decreased [Unknown]
